FAERS Safety Report 8110194-2 (Version None)
Quarter: 2012Q1

REPORT INFORMATION
  Report Type: 
  Country: None (occurrence: None)
  Receive Date: 20120202
  Receipt Date: 20120125
  Transmission Date: 20120608
  Serious: Yes (Hospitalization)
  Sender: FDA-Public Use
  Company Number: JP-ASTRAZENECA-2012SE05936

PATIENT
  Age: 79 Year
  Sex: Female

DRUGS (4)
  1. THEO-DUR [Concomitant]
     Route: 048
     Dates: start: 20120123
  2. SYMBICORT [Suspect]
     Indication: ASTHMA
     Route: 055
     Dates: start: 20120123
  3. CLARITHROMYCIN [Concomitant]
     Route: 048
     Dates: start: 20120123
  4. POLARAMINE [Concomitant]
     Route: 048
     Dates: start: 20120123

REACTIONS (3)
  - TREMOR [None]
  - PALPITATIONS [None]
  - MALAISE [None]
